FAERS Safety Report 14338786 (Version 1)
Quarter: 2017Q4

REPORT INFORMATION
  Report Type: Other
  Country: FR (occurrence: FR)
  Receive Date: 20171229
  Receipt Date: 20171229
  Transmission Date: 20180321
  Serious: Yes (Life-Threatening, Hospitalization, Other)
  Sender: FDA-Public Use
  Company Number: FR-RARE DISEASE THERAPEUTICS, INC.-2038031

PATIENT
  Age: 13 Year
  Sex: Male

DRUGS (12)
  1. PURIXAN [Suspect]
     Active Substance: MERCAPTOPURINE
     Route: 048
     Dates: start: 20170113
  2. CYTARABINE. [Suspect]
     Active Substance: CYTARABINE
     Route: 037
     Dates: start: 20161202
  3. METHOTREXATE. [Suspect]
     Active Substance: METHOTREXATE
     Route: 037
     Dates: start: 20161129
  4. CYCLOPHOSPHAMIDE. [Suspect]
     Active Substance: CYCLOPHOSPHAMIDE
     Route: 042
     Dates: start: 20161202
  5. DAUNORUBICIN HYDROCHLORIDE. [Suspect]
     Active Substance: DAUNORUBICIN HYDROCHLORIDE
     Route: 042
     Dates: start: 20161130, end: 20161222
  6. CYTARABINE. [Suspect]
     Active Substance: CYTARABINE
     Route: 042
     Dates: start: 20170115
  7. VINCRISTINE SULFATE. [Suspect]
     Active Substance: VINCRISTINE SULFATE
     Route: 042
     Dates: start: 20161130
  8. ETOPOSIDE. [Suspect]
     Active Substance: ETOPOSIDE
     Route: 042
     Dates: start: 20170319, end: 20170321
  9. PURIXAN [Suspect]
     Active Substance: MERCAPTOPURINE
     Indication: ACUTE LYMPHOCYTIC LEUKAEMIA
     Route: 048
     Dates: start: 20170808
  10. HYDROCORTISONE. [Suspect]
     Active Substance: HYDROCORTISONE
     Route: 037
     Dates: start: 20161202
  11. PREDNISONE. [Suspect]
     Active Substance: PREDNISONE
     Route: 048
     Dates: start: 20161129, end: 20161228
  12. PEGASPARGASE [Suspect]
     Active Substance: PEGASPARGASE
     Route: 042
     Dates: start: 20171205, end: 20171205

REACTIONS (3)
  - Metabolic acidosis [None]
  - Septic shock [Recovering/Resolving]
  - Diabetes mellitus [None]

NARRATIVE: CASE EVENT DATE: 20171009
